FAERS Safety Report 6643503-1 (Version None)
Quarter: 2010Q1

REPORT INFORMATION
  Report Type: 
  Country: None (occurrence: None)
  Receive Date: 20100319
  Receipt Date: 20100312
  Transmission Date: 20100710
  Serious: Yes (Hospitalization)
  Sender: FDA-Public Use
  Company Number: US-AMGEN-QUU399435

PATIENT
  Sex: Female

DRUGS (1)
  1. ENBREL [Suspect]
     Indication: DRUG USE FOR UNKNOWN INDICATION
     Route: 058
     Dates: start: 20090601

REACTIONS (5)
  - ARTHRALGIA [None]
  - FALL [None]
  - KNEE ARTHROPLASTY [None]
  - ROTATOR CUFF SYNDROME [None]
  - TENDON RUPTURE [None]
